FAERS Safety Report 10062269 (Version 1)
Quarter: 2014Q2

REPORT INFORMATION
  Report Type: Spontaneous
  Country: IT (occurrence: IT)
  Receive Date: 20140407
  Receipt Date: 20140407
  Transmission Date: 20141212
  Serious: Yes (Life-Threatening, Other)
  Sender: FDA-Public Use
  Company Number: IT-JNJFOC-20140317538

PATIENT
  Age: 11 Month
  Sex: Male

DRUGS (3)
  1. DOXORUBICIN [Suspect]
     Indication: NEPHROBLASTOMA
     Route: 042
  2. VINCRISTINE [Suspect]
     Indication: NEPHROBLASTOMA
     Route: 065
  3. ACTINOMYCIN D [Suspect]
     Indication: NEPHROBLASTOMA
     Route: 065

REACTIONS (5)
  - Venoocclusive liver disease [Recovered/Resolved]
  - Hyperammonaemia [Recovered/Resolved]
  - Respiratory distress [Recovered/Resolved]
  - Disseminated intravascular coagulation [Recovered/Resolved]
  - Off label use [Unknown]
